FAERS Safety Report 14328272 (Version 2)
Quarter: 2018Q1

REPORT INFORMATION
  Report Type: Spontaneous
  Country: US (occurrence: US)
  Receive Date: 20171227
  Receipt Date: 20180110
  Transmission Date: 20180509
  Serious: No
  Sender: FDA-Public Use
  Company Number: US-PFIZER INC-2017548609

PATIENT
  Age: 63 Year
  Sex: Male
  Weight: 68.95 kg

DRUGS (7)
  1. SYMBICORT [Concomitant]
     Active Substance: BUDESONIDE\FORMOTEROL FUMARATE DIHYDRATE
     Indication: CHRONIC OBSTRUCTIVE PULMONARY DISEASE
     Dosage: 2 DF, 4X/DAY (2 PUFFS IN THE MORNING AND 2 PUFFS IN DINNER TIME)
  2. VERAPAMIL [Concomitant]
     Active Substance: VERAPAMIL HYDROCHLORIDE
     Indication: HYPERTENSION
     Dosage: 240 MG, 2X/DAY (ONE IN THE MORNING AND ONE AT NIGHT)
     Route: 048
  3. DIVALPREX [Concomitant]
     Indication: HEADACHE
  4. DIVALPREX [Concomitant]
     Indication: HYPERTENSION
     Dosage: 500 MG, 2X/DAY (ONE IN THE MORNING AND ONE AT DINNER TIME)
  5. ASPIRIN. [Concomitant]
     Active Substance: ASPIRIN
     Indication: BLOOD VISCOSITY INCREASED
     Dosage: 81 MG, ALTERNATE DAY
  6. SPIRIVA [Concomitant]
     Active Substance: TIOTROPIUM BROMIDE MONOHYDRATE
     Indication: CHRONIC OBSTRUCTIVE PULMONARY DISEASE
     Dosage: 1 DF, 1X/DAY (1 PUFF IN THE MORNING)
  7. CHANTIX [Suspect]
     Active Substance: VARENICLINE TARTRATE
     Indication: SMOKING CESSATION THERAPY
     Dosage: 1 DF, 1X/DAY
     Route: 048

REACTIONS (3)
  - Tremor [Recovering/Resolving]
  - Nausea [Recovered/Resolved]
  - Condition aggravated [Recovering/Resolving]
